FAERS Safety Report 4583180-7 (Version None)
Quarter: 2005Q1

REPORT INFORMATION
  Report Type: 
  Country: None (occurrence: None)
  Receive Date: 20050125
  Receipt Date: 20041116
  Transmission Date: 20050727
  Serious: Yes (Other)
  Sender: FDA-Public Use
  Company Number: US_0405103249

PATIENT
  Age: 79 Year
  Sex: Female

DRUGS (3)
  1. EVISTA [Suspect]
     Dosage: 60 MG/L DAY
  2. FORTEO [Suspect]
     Indication: OSTEOPOROSIS
     Dates: start: 20041027
  3. FOSAMAX [Concomitant]

REACTIONS (5)
  - ACCIDENTAL OVERDOSE [None]
  - BODY HEIGHT DECREASED [None]
  - FRACTURE [None]
  - INJECTION SITE HAEMORRHAGE [None]
  - MEDICATION ERROR [None]
